FAERS Safety Report 11733274 (Version 2)
Quarter: 2016Q4

REPORT INFORMATION
  Report Type: Spontaneous
  Country: US (occurrence: US)
  Receive Date: 20151113
  Receipt Date: 20161215
  Transmission Date: 20170206
  Serious: No
  Sender: FDA-Public Use
  Company Number: US-BIO PRODUCTS LABORATORY LTD-1044147

PATIENT
  Age: 35 Year
  Sex: Female

DRUGS (2)
  1. GAMMAPLEX [Suspect]
     Active Substance: HUMAN IMMUNOGLOBULIN G
     Route: 042
  2. RITUXAN [Suspect]
     Active Substance: RITUXIMAB

REACTIONS (1)
  - White blood cell count decreased [Unknown]
